FAERS Safety Report 6749915-X (Version None)
Quarter: 2010Q2

REPORT INFORMATION
  Report Type: 
  Country: None (occurrence: None)
  Receive Date: 20100601
  Receipt Date: 20100518
  Transmission Date: 20101027
  Serious: Yes (Hospitalization)
  Sender: FDA-Public Use
  Company Number: US-CELGENEUS-163-21880-10041895

PATIENT
  Sex: Female

DRUGS (1)
  1. REVLIMID [Suspect]
     Route: 048
     Dates: start: 20100329

REACTIONS (5)
  - EPISTAXIS [None]
  - LOCAL SWELLING [None]
  - NEPHROLITHIASIS [None]
  - PAIN [None]
  - PRURITUS [None]
